FAERS Safety Report 22589330 (Version 1)
Quarter: 2023Q2

REPORT INFORMATION
  Report Type: Spontaneous
  Country: US (occurrence: US)
  Receive Date: 20230612
  Receipt Date: 20230612
  Transmission Date: 20230722
  Serious: Yes (Other)
  Sender: FDA-Public Use
  Company Number: US-PFIZER INC-202300215735

PATIENT
  Age: 12 Year
  Sex: Female
  Weight: 76.2 kg

DRUGS (1)
  1. RITUXIMAB [Suspect]
     Active Substance: RITUXIMAB
     Indication: Prophylaxis against transplant rejection
     Dosage: 668 MG (18.6 ML/HR)
     Route: 042
     Dates: start: 20220214, end: 20220215

REACTIONS (5)
  - Anaphylactoid reaction [Unknown]
  - Pharyngeal swelling [Unknown]
  - Hypoaesthesia oral [Unknown]
  - Off label use [Unknown]
  - Off label use [Unknown]

NARRATIVE: CASE EVENT DATE: 20220101
